FAERS Safety Report 6614116-2 (Version None)
Quarter: 2010Q1

REPORT INFORMATION
  Report Type: 
  Country: None (occurrence: None)
  Receive Date: 20100304
  Receipt Date: 20100301
  Transmission Date: 20100710
  Serious: Yes (Other)
  Sender: FDA-Public Use
  Company Number: GB-TEVA-226079ISR

PATIENT
  Age: 27 Year
  Sex: Female
  Weight: 54 kg

DRUGS (6)
  1. CARBAMAZEPINE [Suspect]
     Indication: EPILEPSY
     Route: 048
     Dates: start: 20050101
  2. CLOBAZAM [Suspect]
     Indication: EPILEPSY
     Route: 048
     Dates: start: 20080101
  3. LEVETIRACETAM [Suspect]
     Indication: EPILEPSY
     Route: 048
  4. ZONISAMIDE [Suspect]
     Indication: EPILEPSY
     Route: 048
     Dates: start: 20100206
  5. ZONISAMIDE [Suspect]
     Route: 048
     Dates: start: 20091101, end: 20100205
  6. ZONISAMIDE [Suspect]
     Route: 048
     Dates: start: 20091101, end: 20091101

REACTIONS (6)
  - APHASIA [None]
  - COGNITIVE DISORDER [None]
  - DEPRESSED MOOD [None]
  - DRUG INTERACTION [None]
  - FATIGUE [None]
  - LETHARGY [None]
